FAERS Safety Report 6875519-4 (Version None)
Quarter: 2010Q3

REPORT INFORMATION
  Report Type: 
  Country: None (occurrence: None)
  Receive Date: 20100727
  Receipt Date: 20100722
  Transmission Date: 20110219
  Serious: Yes (Hospitalization)
  Sender: FDA-Public Use
  Company Number: US-B.I. PHARMACEUTICALS,INC./RIDGEFIELD-2010-BP-07121BP

PATIENT
  Age: 60 Year
  Sex: Male
  Weight: 140.61 kg

DRUGS (6)
  1. SPIRIVA [Suspect]
     Indication: CHRONIC OBSTRUCTIVE PULMONARY DISEASE
     Dosage: 18 MCG
     Dates: start: 20100615, end: 20100618
  2. ALBUTEROL [Concomitant]
  3. BYSTOLIC [Concomitant]
     Dosage: 5 MG
     Route: 048
  4. FUROSEMIDE [Concomitant]
     Dosage: 80 MG
     Route: 048
  5. LISINOPRIL [Concomitant]
     Dosage: 10 MG
     Route: 048
  6. POTASSIUM CHLORIDE [Concomitant]
     Dosage: 20 MG
     Route: 048

REACTIONS (2)
  - BLOOD PRESSURE INADEQUATELY CONTROLLED [None]
  - DYSPNOEA [None]
